FAERS Safety Report 20165330 (Version 1)
Quarter: 2021Q4

REPORT INFORMATION
  Report Type: Report from Study
  Country: US (occurrence: US)
  Receive Date: 20211209
  Receipt Date: 20211209
  Transmission Date: 20220303
  Serious: Yes (Other)
  Sender: FDA-Public Use
  Company Number: US-MYLANLABS-2021M1090162

PATIENT
  Age: 74 Year
  Sex: Male

DRUGS (1)
  1. PREDNISONE [Suspect]
     Active Substance: PREDNISONE
     Indication: Autoimmune haemolytic anaemia
     Dosage: 0.6 MILLIGRAM/KILOGRAM, QD (TAPER OVER 6 WEEKS STARTING AT 0.6 MG/KG/DAY)
     Route: 065

REACTIONS (1)
  - Drug ineffective [Unknown]
